FAERS Safety Report 15297427 (Version 1)
Quarter: 2018Q3

REPORT INFORMATION
  Report Type: Other
  Country: FR (occurrence: FR)
  Receive Date: 20180820
  Receipt Date: 20180820
  Transmission Date: 20181010
  Serious: Yes (Life-Threatening)
  Sender: FDA-Public Use
  Company Number: FR-DENTSPLY-2018SCDP000339

PATIENT
  Age: 61 Year
  Sex: Male

DRUGS (1)
  1. XYLOCAINE WITH ADRENALINE (EPINEPHRINE) [Suspect]
     Active Substance: EPINEPHRINE BITARTRATE\LIDOCAINE HYDROCHLORIDE
     Indication: BIOPSY SKIN
     Dosage: 1 ML, UNK
     Route: 058
     Dates: start: 20180719, end: 20180719

REACTIONS (3)
  - Cardiac arrest [Recovered/Resolved]
  - Seizure [Recovered/Resolved]
  - Malaise [Recovered/Resolved]

NARRATIVE: CASE EVENT DATE: 20180719
